FAERS Safety Report 18816805 (Version 3)
Quarter: 2021Q1

REPORT INFORMATION
  Report Type: Spontaneous
  Country: AU (occurrence: AU)
  Receive Date: 20210201
  Receipt Date: 20210212
  Transmission Date: 20210419
  Serious: Yes (Other)
  Sender: FDA-Public Use
  Company Number: AU-GUERBET-AU-20210009

PATIENT
  Age: 41 Year
  Sex: Female

DRUGS (3)
  1. SALINE [Concomitant]
     Active Substance: SODIUM CHLORIDE
     Indication: PRODUCT USED FOR UNKNOWN INDICATION
     Route: 042
     Dates: start: 20210120, end: 20210120
  2. OPTIRAY 350 [Suspect]
     Active Substance: IOVERSOL
     Indication: ANGIOCARDIOGRAM
     Route: 042
     Dates: start: 20210120, end: 20210120
  3. GTN [Concomitant]
     Active Substance: NITROGLYCERIN
     Indication: PRODUCT USED FOR UNKNOWN INDICATION
     Route: 060
     Dates: start: 20210120, end: 20210120

REACTIONS (6)
  - Feeling hot [Recovered/Resolved]
  - Flushing [Recovered/Resolved]
  - Bradycardia [Recovered/Resolved]
  - Pharyngeal oedema [Recovered/Resolved]
  - Face oedema [Recovered/Resolved]
  - Tremor [Recovered/Resolved]

NARRATIVE: CASE EVENT DATE: 20210120
